FAERS Safety Report 6127392-X (Version None)
Quarter: 2009Q1

REPORT INFORMATION
  Report Type: 
  Country: None (occurrence: None)
  Receive Date: 20090323
  Receipt Date: 20090313
  Transmission Date: 20090719
  Serious: Yes (Other)
  Sender: FDA-Public Use
  Company Number: PHEH2009US02635

PATIENT
  Sex: Female

DRUGS (3)
  1. ZOMETA [Suspect]
     Dosage: UNK
  2. PAXIL [Concomitant]
  3. ALLERGY MEDICATION [Concomitant]

REACTIONS (5)
  - NEURALGIA [None]
  - OSTEONECROSIS [None]
  - SENSITIVITY OF TEETH [None]
  - TOOTH DISORDER [None]
  - TOOTHACHE [None]
